FAERS Safety Report 22942975 (Version 3)
Quarter: 2023Q4

REPORT INFORMATION
  Report Type: Report from Study
  Country: DE (occurrence: DE)
  Receive Date: 20230914
  Receipt Date: 20231120
  Transmission Date: 20240110
  Serious: Yes (Other)
  Sender: FDA-Public Use
  Company Number: DE-JNJFOC-20230924861

PATIENT
  Age: 66 Year
  Sex: Female
  Weight: 63.1 kg

DRUGS (14)
  1. TECLISTAMAB [Suspect]
     Active Substance: TECLISTAMAB
     Indication: Plasma cell myeloma
     Route: 058
     Dates: start: 20230308, end: 20230822
  2. DARATUMUMAB [Suspect]
     Active Substance: DARATUMUMAB
     Indication: Plasma cell myeloma
     Route: 065
     Dates: start: 20230307, end: 20230814
  3. LENALIDOMIDE [Suspect]
     Active Substance: LENALIDOMIDE
     Indication: Plasma cell myeloma
     Route: 048
     Dates: start: 20230424, end: 20230912
  4. DEXAMETHASONE [Concomitant]
     Active Substance: DEXAMETHASONE
     Indication: Plasma cell myeloma
     Route: 065
     Dates: start: 20230308, end: 20230811
  5. COTRIM [Concomitant]
     Active Substance: SULFAMETHOXAZOLE\TRIMETHOPRIM
     Indication: Antifungal prophylaxis
     Dosage: 800/160 MG
     Dates: start: 20230307, end: 20230911
  6. VALSARTAN [Concomitant]
     Active Substance: VALSARTAN
  7. AMLODIPINE [Concomitant]
     Active Substance: AMLODIPINE BESYLATE
  8. PANTOPRAZOLE [Concomitant]
     Active Substance: PANTOPRAZOLE
  9. ACYCLOVIR [Concomitant]
     Active Substance: ACYCLOVIR
     Dosage: 400
     Dates: start: 202303
  10. NOVALGIN (METAMIZOLE SODIUM) [Concomitant]
     Active Substance: METAMIZOLE SODIUM
  11. IBUPROFEN [Concomitant]
     Active Substance: IBUPROFEN
  12. ZOMETA [Concomitant]
     Active Substance: ZOLEDRONIC ACID
     Dates: end: 20230829
  13. IVIGLOB EX [Concomitant]
     Active Substance: HUMAN IMMUNOGLOBULIN G
     Dates: end: 20230829
  14. HOMEOPATHICS [Concomitant]
     Active Substance: ARNICA MONTANA\CAUSTICUM\COMFREY ROOT\HOMEOPATHICS\LEDUM PALUSTRE TWIG\PSEUDOGNAPHALIUM OBTUSIFOLIUM
     Dates: start: 20230829

REACTIONS (3)
  - Skin reaction [Recovering/Resolving]
  - Rash [Recovered/Resolved with Sequelae]
  - Injection site reaction [Recovering/Resolving]

NARRATIVE: CASE EVENT DATE: 20230829
